FAERS Safety Report 14547958 (Version 1)
Quarter: 2018Q1

REPORT INFORMATION
  Report Type: Spontaneous
  Country: US (occurrence: US)
  Receive Date: 20180219
  Receipt Date: 20180219
  Transmission Date: 20180509
  Serious: No
  Sender: FDA-Public Use
  Company Number: US-GLAXOSMITHKLINE-US2018026313

PATIENT
  Sex: Male

DRUGS (3)
  1. ASPIRIN (BABY) [Concomitant]
     Active Substance: ASPIRIN
  2. LIALDA [Concomitant]
     Active Substance: MESALAMINE
  3. VALTREX [Suspect]
     Active Substance: VALACYCLOVIR HYDROCHLORIDE
     Indication: HERPES SIMPLEX
     Dosage: 1 G, 1D
     Dates: start: 20180112, end: 20180207

REACTIONS (1)
  - Cluster headache [Not Recovered/Not Resolved]
